FAERS Safety Report 14971208 (Version 2)
Quarter: 2018Q3

REPORT INFORMATION
  Report Type: Spontaneous
  Country: US (occurrence: US)
  Receive Date: 20180604
  Receipt Date: 20180710
  Transmission Date: 20181010
  Serious: No
  Sender: FDA-Public Use
  Company Number: US-TAIHO ONCOLOGY INC-EU-2018-00699

PATIENT
  Sex: Female
  Weight: 51.3 kg

DRUGS (9)
  1. OMEPRAZOLE. [Concomitant]
     Active Substance: OMEPRAZOLE
     Dosage: NI
  2. MELOXICAM. [Concomitant]
     Active Substance: MELOXICAM
     Dosage: NI
  3. ALEVE [Concomitant]
     Active Substance: NAPROXEN SODIUM
     Dosage: NI
  4. GABAPENTIN. [Concomitant]
     Active Substance: GABAPENTIN
     Dosage: NI
  5. LONSURF [Suspect]
     Active Substance: TIPIRACIL HYDROCHLORIDE\TRIFLURIDINE
     Indication: COLON CANCER
     Dosage: CYCLE 7 STARTED ON 03MAY2018
     Route: 048
     Dates: start: 20171005, end: 2018
  6. ADVAIR HFA [Concomitant]
     Active Substance: FLUTICASONE PROPIONATE\SALMETEROL XINAFOATE
     Dosage: NI
  7. FLUTICASONE. [Concomitant]
     Active Substance: FLUTICASONE
     Dosage: NI
  8. FUROSEMIDE. [Concomitant]
     Active Substance: FUROSEMIDE
     Dosage: NI
  9. COLECALCIFEROL [Concomitant]
     Active Substance: CHOLECALCIFEROL
     Dosage: NI

REACTIONS (7)
  - Abdominal distension [Unknown]
  - Abdominal discomfort [Unknown]
  - Disease progression [Unknown]
  - Drug ineffective [Unknown]
  - Nausea [Unknown]
  - Diarrhoea [Unknown]
  - Flatulence [Unknown]

NARRATIVE: CASE EVENT DATE: 2018
